FAERS Safety Report 10785155 (Version 1)
Quarter: 2015Q1

REPORT INFORMATION
  Report Type: Spontaneous
  Country: US (occurrence: US)
  Receive Date: 20150211
  Receipt Date: 20150211
  Transmission Date: 20150721
  Serious: No
  Sender: FDA-Public Use
  Company Number: US-GLAXOSMITHKLINE-A1080233A

PATIENT

DRUGS (1)
  1. LAMICTAL [Suspect]
     Active Substance: LAMOTRIGINE
     Indication: PRODUCT USED FOR UNKNOWN INDICATION
     Dosage: 100 MG SINCE 13 FEBRUARY 2009;200 MG SINCE 16 FEBRUARY 2009
     Dates: start: 20090213

REACTIONS (2)
  - Drug administration error [Unknown]
  - Malaise [Unknown]
